FAERS Safety Report 20329289 (Version 2)
Quarter: 2022Q2

REPORT INFORMATION
  Report Type: Report from Study
  Country: GB (occurrence: GB)
  Receive Date: 20220112
  Receipt Date: 20220622
  Transmission Date: 20220721
  Serious: Yes (Hospitalization)
  Sender: FDA-Public Use
  Company Number: GB-NOVARTISPH-NVSC2022GB005403

PATIENT
  Sex: Male

DRUGS (1)
  1. FINGOLIMOD [Suspect]
     Active Substance: FINGOLIMOD
     Indication: Multiple sclerosis
     Dosage: 0.5 MG, QD
     Route: 048
     Dates: start: 20211213

REACTIONS (5)
  - Fall [Unknown]
  - Vitamin D decreased [Unknown]
  - Hypoacusis [Unknown]
  - Tinnitus [Unknown]
  - Product dose omission issue [Unknown]
